FAERS Safety Report 6898823-2 (Version None)
Quarter: 2010Q3

REPORT INFORMATION
  Report Type: 
  Country: None (occurrence: None)
  Receive Date: 20100802
  Receipt Date: 20100719
  Transmission Date: 20110219
  Serious: Yes (Hospitalization)
  Sender: FDA-Public Use
  Company Number: DE-MYLANLABS-2010S1012755

PATIENT
  Age: 27 Year
  Sex: Female

DRUGS (11)
  1. LACOSAMIDE [Suspect]
     Indication: OVERDOSE
     Route: 048
  2. LACOSAMIDE [Suspect]
     Indication: EPILEPSY
     Route: 048
  3. LACOSAMIDE [Suspect]
     Route: 048
     Dates: start: 20050101
  4. LACOSAMIDE [Suspect]
     Route: 048
     Dates: start: 20050101
  5. LACOSAMIDE [Suspect]
     Dosage: 300-700 MG/DAY
     Route: 048
  6. LACOSAMIDE [Suspect]
     Dosage: 300-700 MG/DAY
     Route: 048
  7. LACOSAMIDE [Suspect]
     Route: 042
  8. LACOSAMIDE [Suspect]
     Route: 042
  9. GABAPENTIN [Suspect]
     Indication: OVERDOSE
     Route: 048
  10. TOPIRAMATE [Suspect]
     Indication: OVERDOSE
     Route: 048
  11. ZONISAMIDE [Suspect]
     Indication: OVERDOSE
     Route: 048

REACTIONS (8)
  - ACIDOSIS [None]
  - COMA [None]
  - ELECTROCARDIOGRAM PR PROLONGATION [None]
  - ENCEPHALOPATHY [None]
  - GRAND MAL CONVULSION [None]
  - HYPOTENSION [None]
  - INTENTIONAL OVERDOSE [None]
  - VOMITING [None]
